FAERS Safety Report 9759593 (Version 1)
Quarter: 2013Q4

REPORT INFORMATION
  Report Type: Spontaneous
  Country: DK (occurrence: FR)
  Receive Date: 20131216
  Receipt Date: 20131216
  Transmission Date: 20140711
  Serious: Yes (Hospitalization)
  Sender: FDA-Public Use
  Company Number: FR-FRI-1000052257

PATIENT
  Age: 35 Year
  Sex: Male

DRUGS (3)
  1. ESCITALOPRAM [Suspect]
     Indication: DEPRESSION
     Dosage: OVERDOSE WITH ONE INTAKE OF 14 TABLETS OF 20 MG
     Route: 048
     Dates: start: 20130202, end: 20130202
  2. BACLOFENE [Suspect]
     Indication: ALCOHOLISM
     Dosage: OVERDOSE WITH ONE INTAKE OF 20 DF
     Route: 048
     Dates: start: 20130202, end: 20130202
  3. SERESTA [Suspect]
     Dosage: OVERDOSE WITH ONE INTAKE OF 100 TABLETS OF 50 MG
     Route: 048
     Dates: start: 20130202, end: 20130202

REACTIONS (4)
  - Toxic encephalopathy [Recovered/Resolved]
  - Disturbance in attention [Recovered/Resolved]
  - Hypothermia [Recovered/Resolved]
  - Intentional overdose [Recovered/Resolved]
